FAERS Safety Report 5195844-5 (Version None)
Quarter: 2007Q1

REPORT INFORMATION
  Report Type: 
  Country: None (occurrence: None)
  Receive Date: 20070102
  Receipt Date: 20061221
  Transmission Date: 20070707
  Serious: Yes (Hospitalization)
  Sender: FDA-Public Use
  Company Number: US-AMGEN-US204551

PATIENT
  Sex: Female

DRUGS (12)
  1. ARANESP [Suspect]
     Indication: DIALYSIS
     Route: 058
     Dates: start: 20050513
  2. ATACAND [Concomitant]
  3. CALCITRIOL [Concomitant]
  4. CALCIUM CARBONATE [Concomitant]
  5. COREG [Concomitant]
  6. FERROUS SULFATE TAB [Concomitant]
  7. NORVASC [Concomitant]
  8. PHOSLO [Concomitant]
  9. POTASSIUM CHLORIDE [Concomitant]
  10. NEPHRO-CAPS [Concomitant]
  11. PREDNISONE [Concomitant]
  12. TYLENOL [Concomitant]

REACTIONS (3)
  - KIDNEY TRANSPLANT REJECTION [None]
  - PARATHYROID DISORDER [None]
  - THERAPEUTIC RESPONSE DECREASED [None]
